FAERS Safety Report 24617074 (Version 2)
Quarter: 2025Q2

REPORT INFORMATION
  Report Type: Spontaneous
  Country: US (occurrence: US)
  Receive Date: 20241114
  Receipt Date: 20250409
  Transmission Date: 20250717
  Serious: Yes (Other)
  Sender: COOPERSURGICAL
  Company Number: US-COOPERSURGICAL, INC.-2024CPS003362

PATIENT
  Age: 32 Year
  Sex: Female
  Weight: 74.83 kg

DRUGS (5)
  1. PARAGARD T 380A [Suspect]
     Active Substance: COPPER
     Indication: Contraception
     Route: 015
     Dates: start: 19990801
  2. AZELASTINE [Concomitant]
     Active Substance: AZELASTINE
     Dates: start: 2007
  3. CLARITIN [Concomitant]
     Active Substance: LORATADINE
     Dates: start: 2007
  4. LEVOTHYROXINE [Concomitant]
     Active Substance: LEVOTHYROXINE
     Dates: start: 2007
  5. MONTELUKAST [Concomitant]
     Active Substance: MONTELUKAST
     Dates: start: 2007

REACTIONS (5)
  - Cervical dysplasia [Unknown]
  - Foreign body in reproductive tract [Not Recovered/Not Resolved]
  - Complication of device removal [Not Recovered/Not Resolved]
  - Emotional disorder [Unknown]
  - Device use issue [Unknown]

NARRATIVE: CASE EVENT DATE: 20050101
